FAERS Safety Report 20612422 (Version 2)
Quarter: 2022Q1

REPORT INFORMATION
  Report Type: Report from Study
  Country: IL (occurrence: None)
  Receive Date: 20220318
  Receipt Date: 20220325
  Transmission Date: 20220423
  Serious: Yes (Hospitalization)
  Sender: FDA-Public Use
  Company Number: IL-ROCHE-3031666

PATIENT
  Age: 67 Year
  Sex: Female
  Weight: 82 kg

DRUGS (23)
  1. GLOFITAMAB [Suspect]
     Active Substance: GLOFITAMAB
     Indication: B-cell lymphoma refractory
     Dosage: START DATE OF MOST RECENT DOSE (30 MG) OF STUDY DRUG PRIOR TO AE AND SAE: 18/JAN/2022 AT 12:40 PM?ST
     Route: 042
     Dates: start: 20211017
  2. OBINUTUZUMAB [Suspect]
     Active Substance: OBINUTUZUMAB
     Indication: B-cell lymphoma refractory
     Dosage: TOTAL VOLUME PRIOR AE AND SAE: 250 ML?START DATE OF MOST RECENT DOSE (1000 MG) OF STUDY DRUG PRIOR T
     Route: 042
     Dates: start: 20211010
  3. POLATUZUMAB VEDOTIN [Suspect]
     Active Substance: POLATUZUMAB VEDOTIN
     Indication: B-cell lymphoma refractory
     Dosage: TOTAL VOLUME PRIOR AE AND SAE: 107.4 ML?START DATE OF MOST RECENT DOSE OF STUDY DRUG PRIOR TO AE AND
     Route: 042
     Dates: start: 20211011
  4. FUCIDIN [Concomitant]
     Active Substance: FUSIDATE SODIUM
     Indication: Skin infection
     Dates: start: 20211217, end: 20220117
  5. AMOXICILLIN [Concomitant]
     Active Substance: AMOXICILLIN
     Indication: Viral infection
     Dates: start: 20220111, end: 20220117
  6. DEXAMETHASONE [Concomitant]
     Active Substance: DEXAMETHASONE
     Indication: Premedication
     Route: 042
     Dates: start: 20220118, end: 20220118
  7. ACETAMINOPHEN [Concomitant]
     Active Substance: ACETAMINOPHEN
     Indication: Premedication
     Route: 048
     Dates: start: 20220118, end: 20220118
  8. PROMETHAZINE [Concomitant]
     Active Substance: PROMETHAZINE HYDROCHLORIDE
     Indication: Premedication
     Route: 048
     Dates: start: 20220118, end: 20220118
  9. MAXITROL [Concomitant]
     Active Substance: DEXAMETHASONE\NEOMYCIN SULFATE\POLYMYXIN B SULFATE
     Indication: Conjunctivitis
     Dosage: ONGOING: YES
     Dates: start: 20210802
  10. ELYSTAMINE [Concomitant]
     Indication: Conjunctivitis
     Dosage: ONGOING: YES
     Dates: start: 20210802
  11. FUCITALMIC [Concomitant]
     Indication: Conjunctivitis
     Dosage: ONGOING: YES
     Dates: start: 20210927
  12. ALLOPURINOL [Concomitant]
     Active Substance: ALLOPURINOL
     Dates: start: 20211010
  13. SEDURAL [Concomitant]
     Indication: Dysuria
     Route: 065
     Dates: start: 20220216, end: 20220216
  14. ENOXAPARIN SODIUM [Concomitant]
     Active Substance: ENOXAPARIN SODIUM
     Indication: Pulmonary embolism
     Route: 065
     Dates: start: 20220217, end: 20220217
  15. ENOXAPARIN SODIUM [Concomitant]
     Active Substance: ENOXAPARIN SODIUM
     Route: 065
     Dates: start: 20220306
  16. METOCLOPRAMIDE [Concomitant]
     Active Substance: METOCLOPRAMIDE
     Route: 065
     Dates: start: 20220217, end: 20220217
  17. OMEPRAZOLE [Concomitant]
     Active Substance: OMEPRAZOLE
     Route: 065
     Dates: start: 20220217, end: 20220225
  18. OMEPRAZOLE [Concomitant]
     Active Substance: OMEPRAZOLE
     Route: 065
     Dates: start: 20220306
  19. AMOXICILLIN\CLAVULANATE POTASSIUM [Concomitant]
     Active Substance: AMOXICILLIN\CLAVULANATE POTASSIUM
     Indication: Skin infection
     Dates: start: 20220206, end: 20220213
  20. BROTIZOLAM [Concomitant]
     Active Substance: BROTIZOLAM
     Indication: Insomnia
     Dates: start: 20220308
  21. KAYEXALATE [Concomitant]
     Active Substance: SODIUM POLYSTYRENE SULFONATE
     Indication: Hyperkalaemia
  22. AVILAC [Concomitant]
     Indication: Constipation
     Dates: start: 20220306, end: 20220311
  23. SODIUM CHLORIDE [Concomitant]
     Active Substance: SODIUM CHLORIDE
     Indication: Supportive care
     Dates: start: 20220306, end: 20220306

REACTIONS (2)
  - COVID-19 [Not Recovered/Not Resolved]
  - COVID-19 pneumonia [Not Recovered/Not Resolved]

NARRATIVE: CASE EVENT DATE: 20220216
